FAERS Safety Report 6106831-4 (Version None)
Quarter: 2009Q1

REPORT INFORMATION
  Report Type: 
  Country: None (occurrence: None)
  Receive Date: 20090304
  Receipt Date: 20090129
  Transmission Date: 20090719
  Serious: Yes (Life-Threatening)
  Sender: FDA-Public Use
  Company Number: 2009EU000499

PATIENT
  Age: 88 Year
  Sex: Female

DRUGS (4)
  1. SOLIFENACIN      (SOLIFENACIN) [Suspect]
     Indication: URINARY TRACT DISORDER
     Dosage: 5 MG, /D
     Dates: end: 20090105
  2. ISOSORBIDE MONONITRATE [Concomitant]
  3. LANSOPRAZOLE [Concomitant]
  4. RAMIPRIL [Concomitant]

REACTIONS (1)
  - SWOLLEN TONGUE [None]
